FAERS Safety Report 25535370 (Version 2)
Quarter: 2025Q4

REPORT INFORMATION
  Report Type: Spontaneous
  Country: US (occurrence: US)
  Receive Date: 20250709
  Receipt Date: 20251225
  Transmission Date: 20260117
  Serious: Yes (Hospitalization)
  Sender: ELI LILLY AND COMPANY
  Company Number: US-ELI_LILLY_AND_COMPANY-US202507001703

PATIENT
  Age: 51 Year
  Sex: Female
  Weight: 200 kg

DRUGS (9)
  1. MOUNJARO [Suspect]
     Active Substance: TIRZEPATIDE
     Indication: Cardiovascular disorder
     Dosage: 2.5 MG, WEEKLY (1/W)
     Route: 065
     Dates: start: 20230316, end: 20230316
  2. MOUNJARO [Suspect]
     Active Substance: TIRZEPATIDE
     Indication: Cardiovascular disorder
     Dosage: 2.5 MG, WEEKLY (1/W)
     Route: 065
     Dates: start: 20230316, end: 20230316
  3. MOUNJARO [Suspect]
     Active Substance: TIRZEPATIDE
     Indication: Cardiovascular disorder
     Dosage: 5 MG, WEEKLY (1/W)
     Route: 065
     Dates: start: 20230414, end: 20230414
  4. MOUNJARO [Suspect]
     Active Substance: TIRZEPATIDE
     Indication: Cardiovascular disorder
     Dosage: 5 MG, WEEKLY (1/W)
     Route: 065
     Dates: start: 20230414, end: 20230414
  5. ELIQUIS [Concomitant]
     Active Substance: APIXABAN
     Indication: Atrial fibrillation
  6. ELIQUIS [Concomitant]
     Active Substance: APIXABAN
     Indication: Deep vein thrombosis
  7. ELIQUIS [Concomitant]
     Active Substance: APIXABAN
     Indication: Pulmonary embolism
  8. NORETHINDRONE [Concomitant]
     Active Substance: NORETHINDRONE
     Indication: Menstrual disorder
  9. NORETHINDRONE [Concomitant]
     Active Substance: NORETHINDRONE
     Indication: Hormone level abnormal

REACTIONS (6)
  - Intestinal obstruction [Recovered/Resolved]
  - Nausea [Not Recovered/Not Resolved]
  - Vomiting [Not Recovered/Not Resolved]
  - Abdominal pain [Not Recovered/Not Resolved]
  - Impaired gastric emptying [Not Recovered/Not Resolved]
  - Off label use [Unknown]

NARRATIVE: CASE EVENT DATE: 20230505
